FAERS Safety Report 6707900-8 (Version None)
Quarter: 2010Q2

REPORT INFORMATION
  Report Type: 
  Country: None (occurrence: None)
  Receive Date: 20100503
  Receipt Date: 20090908
  Transmission Date: 20101027
  Serious: No
  Sender: FDA-Public Use
  Company Number: US-ASTRAZENECA-2009SE12055

PATIENT
  Age: 530 Month
  Sex: Male
  Weight: 86.2 kg

DRUGS (2)
  1. NEXIUM [Suspect]
     Indication: GASTROOESOPHAGEAL REFLUX DISEASE
     Route: 048
     Dates: start: 20080501
  2. FISH OIL [Concomitant]

REACTIONS (3)
  - ANAEMIA [None]
  - SERUM FERRITIN INCREASED [None]
  - TRANSFERRIN INCREASED [None]
